FAERS Safety Report 6420991-7 (Version None)
Quarter: 2009Q4

REPORT INFORMATION
  Report Type: 
  Country: None (occurrence: None)
  Receive Date: 20091030
  Receipt Date: 20091022
  Transmission Date: 20100525
  Serious: Yes (Hospitalization)
  Sender: FDA-Public Use
  Company Number: ES-ROCHE-663859

PATIENT
  Age: 76 Year
  Sex: Female

DRUGS (2)
  1. CAPECITABINE [Suspect]
     Indication: DRUG USE FOR UNKNOWN INDICATION
     Route: 065
     Dates: start: 20090301, end: 20090301
  2. CAPECITABINE [Suspect]
     Dosage: DOSE REDUCED TO 25 %
     Route: 065
     Dates: start: 20090301, end: 20090301

REACTIONS (1)
  - GASTROINTESTINAL TOXICITY [None]
